FAERS Safety Report 8784428 (Version 1)
Quarter: 2012Q4

REPORT INFORMATION
  Report Type: Spontaneous
  Country: US (occurrence: None)
  Receive Date: 20120830
  Receipt Date: 20120830
  Transmission Date: 20130627
  Serious: Yes (Hospitalization)
  Sender: FDA-Public Use
  Company Number: 3-829512559

PATIENT
  Age: 3 Year
  Sex: Female

DRUGS (2)
  1. UP+UP CHILDREN^S ALLERGY MELTS CONTAINING DIPHENHYDRAMINE HCI, 12.5 MG; DISTRIB. BY TARGET CORP [Suspect]
     Indication: COLD
  2. UP+UP CHILDREN^S ALLERGY MELTS CONTAINING DIPHENHYDRAMINE HCI, 12.5 MG; DISTRIB. BY TARGET CORP [Suspect]
     Indication: COUGH

REACTIONS (3)
  - Contusion [None]
  - Lip disorder [None]
  - Platelet count decreased [None]
